FAERS Safety Report 7804820-2 (Version None)
Quarter: 2011Q4

REPORT INFORMATION
  Report Type: 
  Country: None (occurrence: None)
  Receive Date: 20111010
  Receipt Date: 20111005
  Transmission Date: 20120403
  Serious: Yes (Death)
  Sender: FDA-Public Use
  Company Number: US-TEVA-300295USA

PATIENT

DRUGS (1)
  1. CLOZAPINE [Suspect]
     Route: 048

REACTIONS (3)
  - DIABETES MELLITUS [None]
  - PERIPHERAL VASCULAR DISORDER [None]
  - ARTERIOSCLEROSIS CORONARY ARTERY [None]
